FAERS Safety Report 25429756 (Version 2)
Quarter: 2025Q3

REPORT INFORMATION
  Report Type: Spontaneous
  Country: AR (occurrence: AR)
  Receive Date: 20250612
  Receipt Date: 20250730
  Transmission Date: 20251021
  Serious: No
  Sender: PFIZER
  Company Number: AR-PFIZER INC-202500114103

PATIENT
  Age: 11 Year
  Sex: Female

DRUGS (1)
  1. GENOTROPIN [Suspect]
     Active Substance: SOMATROPIN
     Indication: Turner^s syndrome
     Dosage: 2 MG
     Dates: start: 20240815

REACTIONS (3)
  - Device mechanical issue [Unknown]
  - Device information output issue [Unknown]
  - Device power source issue [Unknown]
